FAERS Safety Report 9517792 (Version 3)
Quarter: 2013Q4

REPORT INFORMATION
  Report Type: Spontaneous
  Country: IT (occurrence: IT)
  Receive Date: 20130912
  Receipt Date: 20131105
  Transmission Date: 20140711
  Serious: Yes (Other)
  Sender: FDA-Public Use
  Company Number: IT-RANBAXY-2013RR-72929

PATIENT
  Age: 65 Year
  Sex: Female

DRUGS (1)
  1. AMOXICILLIN [Suspect]
     Indication: TOOTH DISORDER
     Dosage: 1 DF, SINGLE
     Route: 048
     Dates: start: 20130413, end: 20130413

REACTIONS (3)
  - Angioedema [Recovered/Resolved]
  - Bronchostenosis [Recovered/Resolved]
  - Urticaria [Recovered/Resolved]
